FAERS Safety Report 6601882-5 (Version None)
Quarter: 2010Q1

REPORT INFORMATION
  Report Type: 
  Country: None (occurrence: None)
  Receive Date: 20100225
  Receipt Date: 20100217
  Transmission Date: 20100710
  Serious: Yes (Hospitalization)
  Sender: FDA-Public Use
  Company Number: IT-ASTRAZENECA-2010SE07026

PATIENT
  Age: 25681 Day
  Sex: Female
  Weight: 56 kg

DRUGS (5)
  1. FULVESTRANT [Suspect]
     Indication: BREAST CANCER METASTATIC
     Dosage: 250 MG ON DAY 1,14 AND 28, THEN MAINTENANCE DOSE 250 MG MONTHLY
     Route: 030
     Dates: start: 20100127, end: 20100210
  2. LAPATINIB CODE NOT BROKEN [Suspect]
     Indication: BREAST CANCER METASTATIC
     Route: 048
     Dates: start: 20100127, end: 20100213
  3. XANAX [Concomitant]
     Indication: DEPRESSION
     Route: 048
     Dates: start: 20091101
  4. ENAPREN [Concomitant]
     Indication: HYPERTENSION
     Route: 048
     Dates: start: 19931115
  5. TENORMIN [Concomitant]
     Indication: HYPERTENSION
     Route: 048
     Dates: start: 19931115

REACTIONS (3)
  - DIARRHOEA [None]
  - HYPERPYREXIA [None]
  - VOMITING [None]
